FAERS Safety Report 15258549 (Version 2)
Quarter: 2018Q4

REPORT INFORMATION
  Report Type: Spontaneous
  Country: FR (occurrence: DE)
  Receive Date: 20180809
  Receipt Date: 20181005
  Transmission Date: 20190204
  Serious: Yes (Other)
  Sender: FDA-Public Use
  Company Number: DE-TEVA-2018-DE-933868

PATIENT
  Age: 50 Year
  Sex: Female

DRUGS (4)
  1. ESTRADIOL. [Suspect]
     Active Substance: ESTRADIOL
     Dosage: 1 PUFF DAILY (1 DOSAGE FORMS, 1 D)
     Route: 062
     Dates: start: 201612, end: 201703
  2. PROGESTERONE. [Suspect]
     Active Substance: PROGESTERONE
     Indication: HORMONE REPLACEMENT THERAPY
     Dosage: 100 MILLIGRAM DAILY; 1 CAPSULE (100 MG, 1 IN 1 D)
     Route: 048
     Dates: start: 201508, end: 201510
  3. PROGESTERONE. [Suspect]
     Active Substance: PROGESTERONE
     Dosage: 1 CAPSULE (1 DOSAGE FORM, 1 IN 1 D)
     Route: 048
     Dates: start: 201612, end: 201703
  4. ESTRADIOL. [Suspect]
     Active Substance: ESTRADIOL
     Indication: HORMONE REPLACEMENT THERAPY
     Dosage: 1 DOSAGE FORMS DAILY; 1 PUFF DAILY (1 DOSAGE FORMS, 1 IN 1)
     Route: 062
     Dates: start: 201508, end: 201510

REACTIONS (2)
  - Ophthalmic vein thrombosis [Unknown]
  - Retinal vein occlusion [Recovered/Resolved]

NARRATIVE: CASE EVENT DATE: 201704
